FAERS Safety Report 6161962-8 (Version None)
Quarter: 2009Q2

REPORT INFORMATION
  Report Type: 
  Country: None (occurrence: None)
  Receive Date: 20090417
  Receipt Date: 20090417
  Transmission Date: 20091009
  Serious: Yes (Other)
  Sender: FDA-Public Use
  Company Number: None

PATIENT
  Age: 53 Year
  Sex: Female
  Weight: 88.4514 kg

DRUGS (1)
  1. NULYTELY [Suspect]
     Indication: COLONOSCOPY
     Dosage: AS DIRECTED ON LABEL PO
     Route: 048
     Dates: start: 20090415, end: 20090415

REACTIONS (2)
  - LIP SWELLING [None]
  - PRURITUS GENERALISED [None]
